FAERS Safety Report 24179016 (Version 1)
Quarter: 2024Q3

REPORT INFORMATION
  Report Type: Spontaneous
  Country: US (occurrence: None)
  Receive Date: 20240805
  Receipt Date: 20240805
  Transmission Date: 20241016
  Serious: No
  Sender: Public
  Company Number: None

PATIENT
  Age: 37 Year
  Sex: Female
  Weight: 74.25 kg

DRUGS (2)
  1. VICTOZA [Suspect]
     Active Substance: LIRAGLUTIDE
     Indication: Diabetes mellitus
     Route: 058
     Dates: start: 20240109, end: 20240801
  2. CORLANOR [Concomitant]
     Active Substance: IVABRADINE HYDROCHLORIDE

REACTIONS (5)
  - Nausea [None]
  - Abdominal distension [None]
  - Vomiting [None]
  - Lipase increased [None]
  - Pancreatitis [None]

NARRATIVE: CASE EVENT DATE: 20240729
